FAERS Safety Report 7602977 (Version 6)
Quarter: 2018Q4

REPORT INFORMATION
  Report Type: Spontaneous
  Country: GB (occurrence: GB)
  Receive Date: 20100923
  Receipt Date: 20181218
  Transmission Date: 20190205
  Serious: Yes (Death, Other)
  Sender: FDA-Public Use
  Company Number: GB-PFIZER INC-2010116344

PATIENT
  Age: 70 Year
  Sex: Female
  Weight: 26.4 kg

DRUGS (12)
  1. FLUCONAZOLE. [Suspect]
     Active Substance: FLUCONAZOLE
     Indication: SYSTEMIC CANDIDA
     Dosage: 50-100MG
     Route: 048
     Dates: start: 20100111
  2. WARFARIN [Interacting]
     Active Substance: WARFARIN
     Dosage: VARIABLE
     Route: 048
  3. FUROSEMIDE. [Concomitant]
     Active Substance: FUROSEMIDE
     Indication: ANAL CANDIDIASIS
     Dosage: UNK
  4. CALPOL [Concomitant]
     Active Substance: ACETAMINOPHEN
     Dosage: UNK
     Route: 048
  5. COD LIVER OIL/TOCOPHERYL ACETATE [Concomitant]
     Route: 048
  6. CO-AMOXICLAV [Concomitant]
     Active Substance: AMOXICILLIN\CLAVULANATE POTASSIUM
     Indication: COUGH
  7. VITAMIN D [Concomitant]
     Active Substance: CHOLECALCIFEROL
     Dosage: UNK
     Route: 048
  8. ATORVASTATIN [Concomitant]
     Active Substance: ATORVASTATIN
     Dosage: UNK
  9. CO-AMOXICLAV [Concomitant]
     Active Substance: AMOXICILLIN\CLAVULANATE POTASSIUM
     Indication: LOWER RESPIRATORY TRACT INFECTION
     Dosage: UNK
  10. VITAMIN C [Concomitant]
     Active Substance: ASCORBIC ACID
     Dosage: UNK
     Route: 048
  11. CODEINE PHOSPHATE [Concomitant]
     Active Substance: CODEINE PHOSPHATE
     Dosage: UNK
     Route: 048
  12. VITAMIN E [Concomitant]
     Active Substance: .ALPHA.-TOCOPHEROL
     Dosage: UNK
     Route: 048

REACTIONS (7)
  - Facial paralysis [Unknown]
  - Haemarthrosis [Not Recovered/Not Resolved]
  - Cerebral haemorrhage [Fatal]
  - Drug interaction [Unknown]
  - Vomiting [Not Recovered/Not Resolved]
  - International normalised ratio increased [Unknown]
  - Headache [Unknown]

NARRATIVE: CASE EVENT DATE: 20100124
